FAERS Safety Report 21046861 (Version 1)
Quarter: 2022Q3

REPORT INFORMATION
  Report Type: Spontaneous
  Country: US (occurrence: None)
  Receive Date: 20220705
  Receipt Date: 20220705
  Transmission Date: 20221026
  Serious: Yes (Other)
  Sender: FDA-Public Use
  Company Number: None

PATIENT
  Age: 51 Year
  Sex: Female
  Weight: 87.75 kg

DRUGS (5)
  1. PAXLOVID [Suspect]
     Active Substance: NIRMATRELVIR\RITONAVIR
     Indication: COVID-19
     Dosage: OTHER STRENGTH : UNKNOWN;?FREQUENCY : TWICE A DAY;?
     Route: 048
     Dates: start: 20220622, end: 20220627
  2. FLUOXETINE [Concomitant]
     Active Substance: FLUOXETINE HYDROCHLORIDE
  3. VIVELLE-DOT [Concomitant]
     Active Substance: ESTRADIOL
  4. NEXIUM [Concomitant]
     Active Substance: ESOMEPRAZOLE MAGNESIUM
  5. VITAMINS [Concomitant]
     Active Substance: VITAMINS

REACTIONS (8)
  - Dysgeusia [None]
  - Oropharyngeal pain [None]
  - Headache [None]
  - Nasal congestion [None]
  - SARS-CoV-2 test positive [None]
  - Respiratory tract congestion [None]
  - Heart rate irregular [None]
  - Tachycardia [None]

NARRATIVE: CASE EVENT DATE: 20220701
